FAERS Safety Report 18319706 (Version 4)
Quarter: 2020Q4

REPORT INFORMATION
  Report Type: Spontaneous
  Country: US (occurrence: US)
  Receive Date: 20200928
  Receipt Date: 20201202
  Transmission Date: 20210113
  Serious: Yes (Other)
  Sender: FDA-Public Use
  Company Number: US-BAYER-2020-206721

PATIENT
  Age: 33 Year
  Sex: Male

DRUGS (5)
  1. KOGENATE FS [Suspect]
     Active Substance: ANTIHEMOPHILIC FACTOR, HUMAN RECOMBINANT
     Dosage: 1 DOSE OF KOGENATE 6780 UN FOR THE RIGHT HAND BLEED
     Route: 042
  2. KOGENATE FS [Suspect]
     Active Substance: ANTIHEMOPHILIC FACTOR, HUMAN RECOMBINANT
     Dosage: 3390 IU
     Route: 042
  3. KOGENATE FS [Suspect]
     Active Substance: ANTIHEMOPHILIC FACTOR, HUMAN RECOMBINANT
     Dosage: 4 DF, INFUSED 4 DOSES OF FACTOR TO RESOLVE
     Route: 042
     Dates: start: 20200831
  4. KOGENATE FS [Suspect]
     Active Substance: ANTIHEMOPHILIC FACTOR, HUMAN RECOMBINANT
     Dosage: 2 DOSES OF KOGENATE 6780 UN  FOR THE SPONTANEOUS LEFT ANKLE BLEED
     Route: 042
     Dates: start: 20201007
  5. KOGENATE FS [Suspect]
     Active Substance: ANTIHEMOPHILIC FACTOR, HUMAN RECOMBINANT
     Dosage: 6750 U
     Route: 042

REACTIONS (5)
  - Haemarthrosis [Recovered/Resolved]
  - Haemorrhage [Not Recovered/Not Resolved]
  - Anti factor VIII antibody positive [Not Recovered/Not Resolved]
  - Haemorrhage [Recovered/Resolved]
  - Haemorrhage [Recovered/Resolved]

NARRATIVE: CASE EVENT DATE: 20200831
